FAERS Safety Report 8107504-9 (Version None)
Quarter: 2012Q1

REPORT INFORMATION
  Report Type: 
  Country: None (occurrence: None)
  Receive Date: 20120202
  Receipt Date: 20120121
  Transmission Date: 20120608
  Serious: Yes (Hospitalization)
  Sender: FDA-Public Use
  Company Number: US-ROCHE-1032932

PATIENT
  Age: 65 Year
  Sex: Female
  Weight: 50.5 kg

DRUGS (3)
  1. DOCETAXEL [Suspect]
     Indication: NON-SMALL CELL LUNG CANCER
     Route: 042
     Dates: start: 20111121
  2. CISPLATIN [Suspect]
     Indication: NON-SMALL CELL LUNG CANCER
     Route: 042
     Dates: start: 20111121
  3. AVASTIN [Suspect]
     Indication: NON-SMALL CELL LUNG CANCER
     Route: 042
     Dates: start: 20111121

REACTIONS (7)
  - RENAL FAILURE ACUTE [None]
  - DEHYDRATION [None]
  - ANAEMIA [None]
  - URINARY TRACT INFECTION [None]
  - ATRIAL FIBRILLATION [None]
  - HAEMATOMA [None]
  - LUNG INFECTION [None]
